FAERS Safety Report 5822527-8 (Version None)
Quarter: 2008Q3

REPORT INFORMATION
  Report Type: 
  Country: None (occurrence: None)
  Receive Date: 20080725
  Receipt Date: 20071121
  Transmission Date: 20090109
  Serious: No
  Sender: FDA-Public Use
  Company Number: US-AMGEN-KDL245547

PATIENT
  Sex: Female
  Weight: 62.2 kg

DRUGS (7)
  1. PROCRIT [Suspect]
     Indication: RENAL FAILURE CHRONIC
     Dates: start: 20070601
  2. RENAGEL [Concomitant]
  3. UNSPECIFIED ANTIHYPERTENSIVE AGENT [Concomitant]
  4. COREG [Concomitant]
  5. VITAMIN D [Concomitant]
  6. UNSPECIFIED MEDICATION [Concomitant]
  7. TYLENOL [Concomitant]

REACTIONS (3)
  - HYPERTENSION [None]
  - INJECTION SITE PAIN [None]
  - WEIGHT DECREASED [None]
